FAERS Safety Report 5811477-9 (Version None)
Quarter: 2008Q3

REPORT INFORMATION
  Report Type: 
  Country: None (occurrence: None)
  Receive Date: 20080716
  Receipt Date: 20080328
  Transmission Date: 20090109
  Serious: No
  Sender: FDA-Public Use
  Company Number: US-EISAI MEDIAL RESEARCH-M7001-02900-SPO-US

PATIENT
  Age: 74 Year
  Sex: Male

DRUGS (1)
  1. TARGRETIN [Suspect]
     Indication: MYCOSIS FUNGOIDES
     Route: 048

REACTIONS (1)
  - LYMPHOMA [None]
